FAERS Safety Report 13102447 (Version 1)
Quarter: 2017Q1

REPORT INFORMATION
  Report Type: Spontaneous
  Country: US (occurrence: US)
  Receive Date: 20170110
  Receipt Date: 20170110
  Transmission Date: 20170428
  Serious: No
  Sender: FDA-Public Use
  Company Number: US-ALLERGAN-1671747US

PATIENT
  Age: 81 Year
  Sex: Male

DRUGS (3)
  1. PRED FORTE [Suspect]
     Active Substance: PREDNISOLONE ACETATE
     Dosage: UNK UNK, BID
     Route: 047
  2. ALPHAGAN P [Concomitant]
     Active Substance: BRIMONIDINE TARTRATE
     Indication: GLAUCOMA
     Dosage: UNK UNK, TID
     Route: 047
  3. PRED FORTE [Suspect]
     Active Substance: PREDNISOLONE ACETATE
     Indication: EYE INFECTION
     Dosage: UNK, BID
     Route: 047
     Dates: start: 201608

REACTIONS (3)
  - Ocular discomfort [Unknown]
  - Off label use [Unknown]
  - Product packaging quantity issue [Unknown]
